FAERS Safety Report 8160283-1 (Version None)
Quarter: 2012Q1

REPORT INFORMATION
  Report Type: 
  Country: None (occurrence: None)
  Receive Date: 20120223
  Receipt Date: 20120223
  Transmission Date: 20120608
  Serious: Yes (Life-Threatening, Hospitalization)
  Sender: FDA-Public Use
  Company Number: None

PATIENT
  Age: 24 Year
  Sex: Female
  Weight: 99.79 kg

DRUGS (1)
  1. SEASONIQUE [Suspect]
     Indication: CONTRACEPTION
     Dosage: 1 PILL
     Route: 048
     Dates: start: 20070101, end: 20101001

REACTIONS (4)
  - BENIGN INTRACRANIAL HYPERTENSION [None]
  - CHOLECYSTECTOMY [None]
  - HEPATECTOMY [None]
  - HEPATIC ADENOMA [None]
